FAERS Safety Report 8571149-7 (Version None)
Quarter: 2012Q3

REPORT INFORMATION
  Report Type: 
  Country: None (occurrence: None)
  Receive Date: 20120730
  Receipt Date: 20120730
  Transmission Date: 20120928
  Serious: Yes (Other)
  Sender: FDA-Public Use
  Company Number: None

PATIENT
  Age: 59 Year
  Sex: Female
  Weight: 56.6996 kg

DRUGS (1)
  1. MULTIVITAMIN [Suspect]
     Indication: DRUG THERAPY
     Dosage: 1 TABLET/DAY DAILY PO
     Route: 048
     Dates: start: 20120601, end: 20120723

REACTIONS (2)
  - PRODUCT LABEL ISSUE [None]
  - DIARRHOEA [None]
